FAERS Safety Report 6430882-3 (Version None)
Quarter: 2009Q4

REPORT INFORMATION
  Report Type: 
  Country: None (occurrence: None)
  Receive Date: 20091106
  Receipt Date: 20091102
  Transmission Date: 20100525
  Serious: Yes (Other)
  Sender: FDA-Public Use
  Company Number: ES-MERCK-0911ESP00007

PATIENT
  Age: 65 Year
  Sex: Female

DRUGS (1)
  1. FOSAMAX [Suspect]
     Route: 048
     Dates: start: 20030101

REACTIONS (3)
  - DIABETES MELLITUS [None]
  - FEMUR FRACTURE [None]
  - HYPERTENSION [None]
